FAERS Safety Report 11050829 (Version 3)
Quarter: 2015Q4

REPORT INFORMATION
  Report Type: Spontaneous
  Country: US (occurrence: US)
  Receive Date: 20150421
  Receipt Date: 20151026
  Transmission Date: 20160304
  Serious: Yes (Life-Threatening, Hospitalization)
  Sender: FDA-Public Use
  Company Number: US-BAYER-2015-137478

PATIENT
  Age: 35 Year
  Sex: Female
  Weight: 61.22 kg

DRUGS (2)
  1. MIRENA [Suspect]
     Active Substance: LEVONORGESTREL
     Indication: CONTRACEPTION
     Dosage: 20 MCG/24HR, CONT
     Route: 015
     Dates: start: 20130320, end: 20130905
  2. FLUTICASONE [Concomitant]
     Active Substance: FLUTICASONE\FLUTICASONE PROPIONATE
     Dosage: 50 MCG, UNK
     Dates: start: 20130830

REACTIONS (8)
  - Ovarian cyst [None]
  - General physical health deterioration [None]
  - Pelvic pain [None]
  - Abdominal pain lower [None]
  - Uterine perforation [None]
  - Uterine scar [None]
  - Abdominal pain [None]
  - Injury [None]

NARRATIVE: CASE EVENT DATE: 2013
